FAERS Safety Report 23581820 (Version 1)
Quarter: 2024Q1

REPORT INFORMATION
  Report Type: Spontaneous
  Country: US (occurrence: US)
  Receive Date: 20240229
  Receipt Date: 20240229
  Transmission Date: 20240410
  Serious: No
  Sender: FDA-Public Use
  Company Number: US-MYLANLABS-2024M1012619

PATIENT
  Sex: Female
  Weight: 66.68 kg

DRUGS (1)
  1. TYRVAYA [Suspect]
     Active Substance: VARENICLINE TARTRATE
     Indication: Dry eye
     Dosage: 1 DOSAGE FORM, BID (1 SPRAY IN EACH NOSTRIL BID (APPROXIMATELY 12 HOURS APART)
     Route: 045
     Dates: start: 20231204, end: 20240104

REACTIONS (3)
  - Drug ineffective [Unknown]
  - Wrong technique in product usage process [Unknown]
  - Intentional product misuse [Unknown]
